FAERS Safety Report 7969042-3 (Version None)
Quarter: 2011Q4

REPORT INFORMATION
  Report Type: 
  Country: None (occurrence: None)
  Receive Date: 20111209
  Receipt Date: 20111109
  Transmission Date: 20120403
  Serious: Yes (Hospitalization)
  Sender: FDA-Public Use
  Company Number: US-B.I. PHARMACEUTICALS,INC./RIDGEFIELD-2011-BP-24538BP

PATIENT
  Sex: Male

DRUGS (10)
  1. ONGLYZA [Concomitant]
     Dosage: 5 MG
  2. LEVOTHYROXINE SODIUM [Concomitant]
     Dosage: 100 MCG
  3. LIPITOR [Concomitant]
     Dosage: 10 MG
  4. SINEMET [Concomitant]
  5. MULTI-VITAMINS [Concomitant]
  6. PRADAXA [Suspect]
     Indication: ATRIAL FIBRILLATION
     Dosage: 300 MG
     Route: 048
  7. ALLOPURINOL [Concomitant]
     Dosage: 200 MG
  8. METFORMIN HCL [Concomitant]
     Dosage: 1500 MG
     Route: 048
  9. COREG [Concomitant]
     Dosage: 25 MG
  10. OMEGA -3 FISH OIL SUPPLEMENTS [Concomitant]
     Dosage: 1000 MG

REACTIONS (4)
  - HAEMORRHAGE INTRACRANIAL [None]
  - DYSARTHRIA [None]
  - HEADACHE [None]
  - DYSPHAGIA [None]
